FAERS Safety Report 14362593 (Version 1)
Quarter: 2018Q1

REPORT INFORMATION
  Report Type: Spontaneous
  Country: US (occurrence: US)
  Receive Date: 20180105
  Receipt Date: 20180105
  Transmission Date: 20180509
  Serious: No
  Sender: FDA-Public Use
  Company Number: None

PATIENT
  Age: 70 Year
  Sex: Female
  Weight: 81.45 kg

DRUGS (9)
  1. YUVAFEM [Suspect]
     Active Substance: ESTRADIOL HEMIHYDRATE
     Indication: ATROPHIC VULVOVAGINITIS
     Dosage: ?          QUANTITY:1 TABLET(S);?
     Route: 067
     Dates: start: 20171226, end: 20171228
  2. ASA [Concomitant]
     Active Substance: ASPIRIN
  3. VITAMIN C [Concomitant]
     Active Substance: ASCORBIC ACID
  4. SIMVASTATIN. [Concomitant]
     Active Substance: SIMVASTATIN
  5. COQ10 [Concomitant]
     Active Substance: UBIDECARENONE
  6. ATENOLOL. [Concomitant]
     Active Substance: ATENOLOL
  7. HCTZ [Concomitant]
     Active Substance: HYDROCHLOROTHIAZIDE
  8. NAPROXEN. [Concomitant]
     Active Substance: NAPROXEN
  9. TYLENOL [Concomitant]
     Active Substance: ACETAMINOPHEN

REACTIONS (5)
  - Application site pain [None]
  - Expulsion of medication [None]
  - Device issue [None]
  - Burning sensation [None]
  - Product solubility abnormal [None]

NARRATIVE: CASE EVENT DATE: 20171228
